FAERS Safety Report 13411353 (Version 5)
Quarter: 2024Q1

REPORT INFORMATION
  Report Type: Spontaneous
  Country: US (occurrence: US)
  Receive Date: 20170406
  Receipt Date: 20240131
  Transmission Date: 20240410
  Serious: No
  Sender: FDA-Public Use
  Company Number: US-JNJFOC-20170307837

PATIENT
  Age: 17 Year
  Sex: Male

DRUGS (7)
  1. RISPERDAL [Suspect]
     Active Substance: RISPERIDONE
     Indication: Psychotic disorder
     Dosage: VARYING DOSES OF 2 MG, 3 MG AND 4 MG
     Route: 048
     Dates: start: 20090422, end: 20120822
  2. RISPERDAL [Suspect]
     Active Substance: RISPERIDONE
     Indication: Drug therapy
     Route: 048
     Dates: end: 2014
  3. RISPERDAL [Suspect]
     Active Substance: RISPERIDONE
     Indication: Sleep disorder
     Route: 048
  4. RISPERIDONE [Suspect]
     Active Substance: RISPERIDONE
     Indication: Psychotic disorder
     Route: 048
     Dates: start: 20090416, end: 20090422
  5. RISPERIDONE [Suspect]
     Active Substance: RISPERIDONE
     Indication: Drug therapy
     Route: 048
     Dates: end: 2014
  6. RISPERIDONE [Suspect]
     Active Substance: RISPERIDONE
     Route: 048
     Dates: start: 20140213
  7. RISPERIDONE [Suspect]
     Active Substance: RISPERIDONE
     Indication: Product used for unknown indication
     Route: 065

REACTIONS (5)
  - Emotional distress [Unknown]
  - Gynaecomastia [Recovering/Resolving]
  - Blood prolactin increased [Unknown]
  - Muscle twitching [Recovering/Resolving]
  - Treatment noncompliance [Unknown]

NARRATIVE: CASE EVENT DATE: 20090101
